FAERS Safety Report 21513757 (Version 1)
Quarter: 2022Q4

REPORT INFORMATION
  Report Type: Spontaneous
  Country: US (occurrence: US)
  Receive Date: 20221027
  Receipt Date: 20221027
  Transmission Date: 20230112
  Serious: No
  Sender: FDA-Public Use
  Company Number: US-drreddys-SPO/USA/22/0155926

PATIENT
  Age: 18 Year

DRUGS (1)
  1. ACCUTANE [Suspect]
     Active Substance: ISOTRETINOIN
     Indication: Acne
     Dosage: RMA ISSUE DATE: 07/JULY/2022 11:14:38 AM, 09/AUGUST/2022 10:02:12 AM, 08/SEPTEMBER/2022 10:02:55 AM

REACTIONS (2)
  - Lipids increased [Unknown]
  - Hepatic enzyme increased [Unknown]
